FAERS Safety Report 18423625 (Version 3)
Quarter: 2024Q4

REPORT INFORMATION
  Report Type: Spontaneous
  Country: US (occurrence: US)
  Receive Date: 20201024
  Receipt Date: 20241021
  Transmission Date: 20250115
  Serious: No
  Sender: GLAXOSMITHKLINE
  Company Number: US-GSKCCFUS-CASE-00868895_AE-50537

PATIENT
  Age: 52 Year
  Sex: Female

DRUGS (1)
  1. BENLYSTA [Suspect]
     Active Substance: BELIMUMAB
     Indication: Product used for unknown indication
     Dosage: UNK
     Dates: start: 202009

REACTIONS (5)
  - Injection site pain [Recovered/Resolved]
  - Aphonia [Unknown]
  - Nasopharyngitis [Unknown]
  - Multiple allergies [Unknown]
  - Device use error [Unknown]

NARRATIVE: CASE EVENT DATE: 20241013
